FAERS Safety Report 6136441-4 (Version None)
Quarter: 2009Q1

REPORT INFORMATION
  Report Type: 
  Country: None (occurrence: None)
  Receive Date: 20090330
  Receipt Date: 20090216
  Transmission Date: 20090719
  Serious: No
  Sender: FDA-Public Use
  Company Number: US-BAUSCH-2009BL000808

PATIENT
  Age: 3 Year
  Sex: Female
  Weight: 13 kg

DRUGS (2)
  1. OFLOXACIN OTIC SOLUTION 0.3% [Suspect]
     Route: 047
     Dates: start: 20090210, end: 20090216
  2. NISTATIN [Concomitant]
     Indication: DERMATITIS DIAPER

REACTIONS (5)
  - DRUG DISPENSING ERROR [None]
  - EYE DISCHARGE [None]
  - MEDICATION ERROR [None]
  - OCULAR HYPERAEMIA [None]
  - WRONG DRUG ADMINISTERED [None]
